FAERS Safety Report 12759329 (Version 1)
Quarter: 2016Q3

REPORT INFORMATION
  Report Type: Spontaneous
  Country: US (occurrence: US)
  Receive Date: 20160915
  Receipt Date: 20160915
  Transmission Date: 20161109
  Serious: Yes (Hospitalization)
  Sender: FDA-Public Use
  Company Number: None

PATIENT
  Age: 58 Year
  Sex: Male

DRUGS (1)
  1. COPAXONE [Suspect]
     Active Substance: GLATIRAMER ACETATE
     Indication: MULTIPLE SCLEROSIS
     Route: 058
     Dates: start: 20160805, end: 20160815

REACTIONS (6)
  - Migraine [None]
  - Diarrhoea [None]
  - Pyrexia [None]
  - Rash [None]
  - Chills [None]
  - Heart rate increased [None]

NARRATIVE: CASE EVENT DATE: 201608
